FAERS Safety Report 7376357-9 (Version None)
Quarter: 2011Q1

REPORT INFORMATION
  Report Type: 
  Country: None (occurrence: None)
  Receive Date: 20110325
  Receipt Date: 20110323
  Transmission Date: 20110831
  Serious: Yes (Other)
  Sender: FDA-Public Use
  Company Number: DK-PFIZER INC-2011014770

PATIENT
  Age: 92 Year
  Sex: Male

DRUGS (8)
  1. MANDOLGIN [Concomitant]
     Dosage: 50 MG, 4X/DAY
  2. OMNIC [Concomitant]
     Dosage: 0.4 MG, 1X/DAY
  3. HYDROMORPHONE [Concomitant]
     Dosage: UNK
  4. MAGNESIA ^DAK^ [Concomitant]
     Dosage: 500 MG, 1X/DAY
  5. PANTOLOC ^NYCOMED^ [Concomitant]
     Dosage: 40 MG, 1X/DAY
  6. NEURONTIN [Suspect]
     Dosage: 300 MG, 2X/DAY
     Dates: start: 20110112, end: 20110118
  7. ASASANTIN RETARD [Concomitant]
     Dosage: 200 MG, 2X/DAY
  8. GLIMEPIRIDE [Concomitant]
     Dosage: 1 MG, 2X/DAY

REACTIONS (1)
  - EXTRAPYRAMIDAL DISORDER [None]
